FAERS Safety Report 4477983-7 (Version None)
Quarter: 2004Q3

REPORT INFORMATION
  Report Type: 
  Country: None (occurrence: None)
  Receive Date: 20040923
  Receipt Date: 20040614
  Transmission Date: 20050211
  Serious: No
  Sender: FDA-Public Use
  Company Number: USA040670152

PATIENT
  Age: 59 Year
  Sex: Female
  Weight: 73 kg

DRUGS (2)
  1. FORTEO [Suspect]
     Indication: OSTEOPENIA
     Dates: start: 20040610
  2. EVISTA [Suspect]
     Indication: OSTEOPENIA

REACTIONS (4)
  - HOT FLUSH [None]
  - INJECTION SITE DISCOMFORT [None]
  - INJECTION SITE MASS [None]
  - INJECTION SITE PAIN [None]
